FAERS Safety Report 9732777 (Version 2)
Quarter: 2013Q4

REPORT INFORMATION
  Report Type: Report from Study
  Country: US (occurrence: US)
  Receive Date: 20131204
  Receipt Date: 20131215
  Transmission Date: 20140711
  Serious: Yes (Other)
  Sender: FDA-Public Use
  Company Number: US-PFIZER INC-2013337835

PATIENT
  Age: 17 Year
  Sex: Male
  Weight: 159 kg

DRUGS (8)
  1. CRIZOTINIB [Suspect]
     Indication: RENAL CELL CARCINOMA
     Dosage: 280 MG/M2/DOSE, UNK
     Dates: start: 20131119, end: 20131120
  2. CRIZOTINIB [Suspect]
     Dosage: 800 MG, 2X/DAY
  3. DOXORUBICIN HCL [Suspect]
     Indication: RENAL CELL CARCINOMA
     Dosage: 45 MG/M2/DOSE, UNK
     Dates: start: 20131119, end: 20131119
  4. ZINECARD [Concomitant]
     Indication: RENAL CELL CARCINOMA
     Dosage: 450 MG/M2/DOSE, UNK
     Dates: start: 20131119, end: 20131119
  5. VINCRISTINE SULFATE [Concomitant]
     Indication: RENAL CELL CARCINOMA
     Dosage: 1.5 MG/M2/DOSE, UNK
     Dates: start: 20131119, end: 20131119
  6. ALLOPURINOL [Concomitant]
     Indication: HYPERURICAEMIA
     Dosage: 600 MG, 2X/DAY
  7. ALLOPURINOL [Concomitant]
     Dosage: 600 MG, 3X/DAY
  8. HYDROCHLOROTHIAZIDE [Concomitant]
     Indication: HYPERTENSION

REACTIONS (1)
  - Hyperuricaemia [Recovered/Resolved]
